FAERS Safety Report 14376093 (Version 1)
Quarter: 2018Q1

REPORT INFORMATION
  Report Type: Spontaneous
  Country: FR (occurrence: FR)
  Receive Date: 20180111
  Receipt Date: 20180111
  Transmission Date: 20180509
  Serious: Yes (Life-Threatening)
  Sender: FDA-Public Use
  Company Number: FR-MYLANLABS-2018M1002466

PATIENT
  Age: 32 Year
  Sex: Male
  Weight: 53 kg

DRUGS (5)
  1. LOXAPAC                            /00401802/ [Suspect]
     Active Substance: LOXAPINE SUCCINATE
     Indication: PSYCHOTIC DISORDER
     Dosage: UNK
     Route: 048
  2. MODECATE [Suspect]
     Active Substance: FLUPHENAZINE DECANOATE
     Indication: PSYCHOTIC DISORDER
     Dosage: 1 DF, UNK
     Route: 030
  3. PERFALGAN [Suspect]
     Active Substance: ACETAMINOPHEN
     Indication: HYPERTHERMIA
     Route: 042
  4. LORAZEPAM MYLAN [Suspect]
     Active Substance: LORAZEPAM
     Indication: ANXIETY
     Dosage: UNK
     Route: 048
  5. VOGALENE [Suspect]
     Active Substance: METOPIMAZINE
     Indication: NAUSEA
     Dosage: UNK
     Route: 048

REACTIONS (2)
  - Hepatitis [Recovering/Resolving]
  - Hepatitis fulminant [Recovering/Resolving]

NARRATIVE: CASE EVENT DATE: 20171206
